FAERS Safety Report 8792057 (Version 2)
Quarter: 2012Q4

REPORT INFORMATION
  Report Type: 
  Country: US (occurrence: US)
  Receive Date: 20120918
  Receipt Date: 20120924
  Transmission Date: 20130627
  Serious: Yes (Other)
  Sender: FDA-Public Use
  Company Number: US-ASTRAZENECA-2012SE71400

PATIENT
  Age: 58 Year
  Sex: Female

DRUGS (1)
  1. CRESTOR [Suspect]
     Route: 048
     Dates: start: 2004

REACTIONS (4)
  - Aortic aneurysm [Unknown]
  - Cardiac disorder [Unknown]
  - Nephrolithiasis [Unknown]
  - Drug dose omission [Unknown]
